FAERS Safety Report 4407110-3 (Version None)
Quarter: 2004Q3

REPORT INFORMATION
  Report Type: 
  Country: None (occurrence: None)
  Receive Date: 20040721
  Receipt Date: 20040702
  Transmission Date: 20050211
  Serious: Yes (Disabling, Other)
  Sender: FDA-Public Use
  Company Number: USA040566757

PATIENT
  Age: 53 Year
  Sex: Female

DRUGS (2)
  1. PROZAC [Suspect]
     Dosage: 20 MG/ 1DAY
     Dates: start: 19950101, end: 20030101
  2. FLUOXETINE HCL [Concomitant]

REACTIONS (9)
  - CARDIAC DISORDER [None]
  - DYSPNOEA [None]
  - ECHOGRAPHY ABNORMAL [None]
  - GENERALISED OEDEMA [None]
  - LACRIMAL DISORDER [None]
  - LEGAL PROBLEM [None]
  - PALPITATIONS [None]
  - PHARMACEUTICAL PRODUCT COMPLAINT [None]
  - RED BLOOD CELL COUNT INCREASED [None]
